FAERS Safety Report 7118698-6 (Version None)
Quarter: 2010Q4

REPORT INFORMATION
  Report Type: 
  Country: None (occurrence: None)
  Receive Date: 20101123
  Receipt Date: 20101111
  Transmission Date: 20110411
  Serious: No
  Sender: FDA-Public Use
  Company Number: US-PFIZER INC-2010149408

PATIENT
  Sex: Female
  Weight: 43.544 kg

DRUGS (7)
  1. PRISTIQ [Suspect]
     Indication: DEPRESSION
     Dosage: 50 MG, 1X/DAY
     Dates: start: 20101110
  2. WELLBUTRIN [Concomitant]
     Dosage: 40 MG, 1X/DAY
  3. MORPHINE SULFATE [Concomitant]
     Indication: PAIN
     Dosage: 50 MG, 2X/DAY
  4. DARVOCET [Concomitant]
     Indication: BREAKTHROUGH PAIN
     Dosage: 40 TO 100 MG DAILY
  5. LOVENOX [Concomitant]
  6. MORPHINE [Concomitant]
     Indication: BREAKTHROUGH PAIN
  7. PROZAC [Concomitant]
     Dosage: 80 MG, UNK
     Dates: end: 20101110

REACTIONS (2)
  - DIZZINESS [None]
  - VISUAL IMPAIRMENT [None]
